FAERS Safety Report 7495542-9 (Version None)
Quarter: 2011Q2

REPORT INFORMATION
  Report Type: 
  Country: None (occurrence: None)
  Receive Date: 20110523
  Receipt Date: 20110516
  Transmission Date: 20111010
  Serious: Yes (Death)
  Sender: FDA-Public Use
  Company Number: US-ASTELLAS-2011US002224

PATIENT
  Sex: Male

DRUGS (2)
  1. PROGRAF [Suspect]
     Dosage: 2.5 MG, BID
     Route: 065
     Dates: start: 20100301, end: 20110401
  2. PROGRAF [Suspect]
     Indication: RENAL TRANSPLANT
     Dosage: 5.5 MG, BID
     Route: 065
     Dates: start: 20100301, end: 20110401

REACTIONS (1)
  - DEATH [None]
